FAERS Safety Report 7682777-5 (Version None)
Quarter: 2011Q3

REPORT INFORMATION
  Report Type: 
  Country: None (occurrence: None)
  Receive Date: 20110815
  Receipt Date: 20110802
  Transmission Date: 20111222
  Serious: No
  Sender: FDA-Public Use
  Company Number: US-B.I. PHARMACEUTICALS,INC./RIDGEFIELD-2011-BP-19040BP

PATIENT
  Sex: Female
  Weight: 112.7 kg

DRUGS (12)
  1. VITAMIN D [Concomitant]
     Indication: SUPPLEMENTATION THERAPY
     Dates: end: 20110731
  2. ASACOL HD [Concomitant]
     Indication: IRRITABLE BOWEL SYNDROME
  3. CANASA [Concomitant]
     Indication: HAEMORRHOIDS
     Route: 054
  4. PRAVASTATIN [Concomitant]
     Indication: BLOOD CHOLESTEROL INCREASED
  5. ASPIRIN [Concomitant]
     Indication: PROPHYLAXIS
     Dosage: 81 MG
  6. POLYETHYLENE GLYCOL [Concomitant]
     Indication: CONSTIPATION
     Dates: end: 20110731
  7. BUPROPION HCL [Concomitant]
     Indication: DEPRESSION
  8. OMEPRAZOLE [Concomitant]
     Indication: GASTROOESOPHAGEAL REFLUX DISEASE
  9. LOSARTAN POTASSIUM [Concomitant]
     Indication: HYPERTENSION
  10. CALCIUM WITH VITAMIN D [Concomitant]
     Indication: SUPPLEMENTATION THERAPY
     Dosage: 1000 MG
  11. SPIRIVA [Suspect]
     Indication: CHRONIC OBSTRUCTIVE PULMONARY DISEASE
     Dosage: 18 MCG
     Route: 055
     Dates: start: 20110726
  12. ZYRTEC [Concomitant]
     Indication: MULTIPLE ALLERGIES
     Dates: start: 20100101

REACTIONS (5)
  - FREQUENT BOWEL MOVEMENTS [None]
  - ABDOMINAL RIGIDITY [None]
  - ABDOMINAL PAIN [None]
  - NAUSEA [None]
  - DRY MOUTH [None]
